FAERS Safety Report 6168706-4 (Version None)
Quarter: 2009Q2

REPORT INFORMATION
  Report Type: 
  Country: None (occurrence: None)
  Receive Date: 20090424
  Receipt Date: 20090424
  Transmission Date: 20091009
  Serious: No
  Sender: FDA-Public Use
  Company Number: None

PATIENT
  Age: 70 Year
  Sex: Male
  Weight: 44.9 kg

DRUGS (1)
  1. DOCETAXEL [Suspect]
     Indication: NEOPLASM MALIGNANT
     Dosage: 115 MG ONCE IV
     Route: 042
     Dates: start: 20090413, end: 20090413

REACTIONS (3)
  - NAUSEA [None]
  - NEUTROPENIA [None]
  - VOMITING [None]
